FAERS Safety Report 14169651 (Version 2)
Quarter: 2018Q1

REPORT INFORMATION
  Report Type: Spontaneous
  Country: JP (occurrence: JP)
  Receive Date: 20171108
  Receipt Date: 20180205
  Transmission Date: 20180508
  Serious: Yes (Hospitalization)
  Sender: FDA-Public Use
  Company Number: JP-EISAI MEDICAL RESEARCH-EC-2017-032770

PATIENT
  Age: 18 Year
  Sex: Female

DRUGS (21)
  1. PHENOBAL [Suspect]
     Active Substance: PHENOBARBITAL
     Route: 048
     Dates: start: 20171101, end: 20171126
  2. PHENOBAL [Suspect]
     Active Substance: PHENOBARBITAL
     Route: 048
     Dates: start: 20180105, end: 20180126
  3. PHENOBAL [Suspect]
     Active Substance: PHENOBARBITAL
     Route: 048
     Dates: start: 20170904, end: 20171001
  4. PHENOBAL [Suspect]
     Active Substance: PHENOBARBITAL
     Route: 048
     Dates: start: 20171002, end: 20171031
  5. PHENOBAL [Suspect]
     Active Substance: PHENOBARBITAL
     Route: 048
     Dates: start: 20170508, end: 20170618
  6. PHENOBAL [Suspect]
     Active Substance: PHENOBARBITAL
     Route: 048
     Dates: start: 20170619, end: 20170903
  7. FYCOMPA [Suspect]
     Active Substance: PERAMPANEL
     Route: 048
     Dates: start: 20161228, end: 20170115
  8. PHENOBAL [Suspect]
     Active Substance: PHENOBARBITAL
     Indication: LENNOX-GASTAUT SYNDROME
     Route: 048
     Dates: start: 20161219, end: 20170205
  9. FYCOMPA [Suspect]
     Active Substance: PERAMPANEL
     Indication: LENNOX-GASTAUT SYNDROME
     Route: 048
     Dates: start: 20161219, end: 20161227
  10. PHENOBAL [Suspect]
     Active Substance: PHENOBARBITAL
     Route: 048
     Dates: start: 20170329, end: 20170507
  11. FYCOMPA [Suspect]
     Active Substance: PERAMPANEL
     Route: 048
     Dates: start: 20170116, end: 20170126
  12. PHENOBAL [Suspect]
     Active Substance: PHENOBARBITAL
     Route: 048
     Dates: start: 20170206, end: 20170328
  13. PHENOBAL [Suspect]
     Active Substance: PHENOBARBITAL
     Route: 048
     Dates: start: 20171218, end: 20180104
  14. ZARONTIN [Concomitant]
     Active Substance: ETHOSUXIMIDE
     Indication: LENNOX-GASTAUT SYNDROME
     Dosage: UNKNOWN
     Route: 048
  15. PHENOBAL [Suspect]
     Active Substance: PHENOBARBITAL
     Route: 048
     Dates: start: 20171127, end: 20171217
  16. INOVELON [Concomitant]
     Active Substance: RUFINAMIDE
     Indication: LENNOX-GASTAUT SYNDROME
     Route: 048
  17. FYCOMPA [Suspect]
     Active Substance: PERAMPANEL
     Route: 048
     Dates: start: 20170718, end: 20171031
  18. FYCOMPA [Suspect]
     Active Substance: PERAMPANEL
     Route: 048
     Dates: start: 20171101, end: 20171217
  19. FYCOMPA [Suspect]
     Active Substance: PERAMPANEL
     Route: 048
     Dates: start: 20171218
  20. E KEPPRA [Concomitant]
     Active Substance: LEVETIRACETAM
     Indication: LENNOX-GASTAUT SYNDROME
     Dosage: UNKNOWN
     Route: 048
  21. MYSTAN [Concomitant]
     Active Substance: CLOBAZAM
     Indication: LENNOX-GASTAUT SYNDROME
     Dosage: UNKNOWN
     Route: 048

REACTIONS (2)
  - Status epilepticus [Recovered/Resolved]
  - Product use in unapproved indication [Recovered/Resolved]

NARRATIVE: CASE EVENT DATE: 20171015
